FAERS Safety Report 10445738 (Version 2)
Quarter: 2014Q4

REPORT INFORMATION
  Report Type: Spontaneous
  Country: GR (occurrence: GR)
  Receive Date: 20140910
  Receipt Date: 20141001
  Transmission Date: 20150528
  Serious: Yes (Hospitalization)
  Sender: FDA-Public Use
  Company Number: GR-BAYER-2014-131160

PATIENT
  Age: 45 Year
  Sex: Male

DRUGS (2)
  1. LEVITRA [Suspect]
     Active Substance: VARDENAFIL HYDROCHLORIDE TRIHYDRATE
     Dosage: 10 MG, PRN
     Route: 048
     Dates: start: 201008, end: 2013
  2. EFFEXOR [Concomitant]
     Active Substance: VENLAFAXINE HYDROCHLORIDE
     Dosage: FOR ONE AND A HALF MONTH
     Dates: start: 2013, end: 2013

REACTIONS (8)
  - Transaminases increased [None]
  - Blood creatine phosphokinase increased [None]
  - Blood cholesterol increased [Recovered/Resolved]
  - Back pain [Recovered/Resolved]
  - Blood creatine phosphokinase increased [None]
  - Gamma-glutamyltransferase increased [None]
  - Alanine aminotransferase increased [None]
  - Presbyopia [None]

NARRATIVE: CASE EVENT DATE: 201104
